FAERS Safety Report 25172526 (Version 1)
Quarter: 2025Q2

REPORT INFORMATION
  Report Type: Spontaneous
  Country: SG (occurrence: SG)
  Receive Date: 20250408
  Receipt Date: 20250408
  Transmission Date: 20250717
  Serious: Yes (Hospitalization, Other)
  Sender: Steriscience PTE
  Company Number: SG-STERISCIENCE B.V.-2025-ST-000642

PATIENT
  Age: 41 Year
  Sex: Male

DRUGS (12)
  1. SODIUM BICARBONATE [Suspect]
     Active Substance: SODIUM BICARBONATE
     Indication: Metabolic acidosis
     Route: 065
  2. SODIUM BICARBONATE [Suspect]
     Active Substance: SODIUM BICARBONATE
     Dosage: 500 MILLILITER, QH, ISOTONIC SODIUM BICARBONATE SOLUTION
     Route: 065
  3. ACTRAPID [Suspect]
     Active Substance: INSULIN HUMAN
     Indication: Hyperkalaemia
     Route: 065
  4. DEXTROSE [Suspect]
     Active Substance: DEXTROSE MONOHYDRATE
     Indication: Hyperkalaemia
     Route: 065
  5. CALCIUM GLUCONATE [Suspect]
     Active Substance: CALCIUM GLUCONATE
     Indication: Hyperkalaemia
     Route: 065
  6. ATROPINE [Suspect]
     Active Substance: ATROPINE
     Indication: Sinus bradycardia
     Route: 065
  7. ATROPINE [Suspect]
     Active Substance: ATROPINE
     Route: 065
  8. MORPHINE [Concomitant]
     Active Substance: MORPHINE
     Indication: Pain
     Route: 065
  9. CEFTRIAXONE [Concomitant]
     Active Substance: CEFTRIAXONE
     Indication: Evidence based treatment
     Route: 065
  10. METRONIDAZOLE [Concomitant]
     Active Substance: METRONIDAZOLE
     Indication: Evidence based treatment
     Route: 065
  11. METOCLOPRAMIDE [Concomitant]
     Active Substance: METOCLOPRAMIDE
     Indication: Symptomatic treatment
     Route: 065
  12. OMEPRAZOLE [Concomitant]
     Active Substance: OMEPRAZOLE
     Indication: Symptomatic treatment
     Route: 065

REACTIONS (2)
  - Condition aggravated [Unknown]
  - Drug ineffective [Unknown]
